FAERS Safety Report 6934738-9 (Version None)
Quarter: 2010Q3

REPORT INFORMATION
  Report Type: 
  Country: None (occurrence: None)
  Receive Date: 20100820
  Receipt Date: 20100812
  Transmission Date: 20110219
  Serious: Yes (Death, Hospitalization)
  Sender: FDA-Public Use
  Company Number: US-AMGEN-QUU430994

PATIENT
  Sex: Male

DRUGS (1)
  1. EPOGEN [Suspect]
     Indication: RENAL FAILURE CHRONIC
     Dates: start: 20090201

REACTIONS (5)
  - DIABETIC COMPLICATION [None]
  - HERNIA [None]
  - LIVER DISORDER [None]
  - LIVER OPERATION [None]
  - RENAL FAILURE ACUTE [None]
